FAERS Safety Report 8666882 (Version 3)
Quarter: 2012Q4

REPORT INFORMATION
  Report Type: 
  Country: US (occurrence: US)
  Receive Date: 20120716
  Receipt Date: 20121210
  Transmission Date: 20130627
  Serious: Yes (Other)
  Sender: FDA-Public Use
  Company Number: US-ELI_LILLY_AND_COMPANY-US201207003628

PATIENT
  Age: 63 Year
  Sex: Female
  Weight: 51.93 kg

DRUGS (5)
  1. FORTEO [Suspect]
     Indication: OSTEOPOROSIS
     Dosage: UNK UNK, qd
     Dates: start: 20120627
  2. ORENCIA [Concomitant]
     Dosage: UNK
  3. PLAQUENIL [Concomitant]
     Dosage: UNK
  4. SAVELLA [Concomitant]
     Dosage: UNK
  5. PILOCARPINE [Concomitant]
     Dosage: UNK

REACTIONS (7)
  - Convulsion [Recovered/Resolved]
  - Palpitations [Recovered/Resolved]
  - Tremor [Recovered/Resolved]
  - Chills [Recovered/Resolved]
  - Feeling cold [Recovered/Resolved]
  - Nausea [Recovered/Resolved]
  - Insomnia [Unknown]
